FAERS Safety Report 14208526 (Version 4)
Quarter: 2018Q1

REPORT INFORMATION
  Report Type: Report from Study
  Country: BG (occurrence: BG)
  Receive Date: 20171121
  Receipt Date: 20180219
  Transmission Date: 20180508
  Serious: Yes (Hospitalization, Other)
  Sender: FDA-Public Use
  Company Number: BG-BAYER-2017-150214

PATIENT
  Age: 74 Year
  Sex: Female

DRUGS (5)
  1. BETASERC [Concomitant]
     Active Substance: BETAHISTINE
     Indication: VERTIGO CNS ORIGIN
  2. NEXAVAR [Suspect]
     Active Substance: SORAFENIB
     Indication: RENAL CELL CARCINOMA
     Dosage: 400 MG, DAILY
     Route: 048
     Dates: start: 20171204, end: 20180128
  3. NEXAVAR [Suspect]
     Active Substance: SORAFENIB
     Indication: RENAL CELL CARCINOMA
     Dosage: 400 MG, BID
     Route: 048
     Dates: start: 20170717, end: 20170804
  4. DOPEGIT [Concomitant]
     Indication: HYPERTENSION
  5. NEXAVAR [Suspect]
     Active Substance: SORAFENIB
     Indication: RENAL CELL CARCINOMA
     Dosage: 400 MG, BID
     Route: 048
     Dates: start: 20170810, end: 20171109

REACTIONS (16)
  - General physical health deterioration [None]
  - Gait disturbance [None]
  - Asthenia [Recovering/Resolving]
  - Diarrhoea [Recovered/Resolved]
  - Pain in extremity [Recovering/Resolving]
  - Erectile dysfunction [Not Recovered/Not Resolved]
  - Vertigo [Recovering/Resolving]
  - Arthralgia [Recovering/Resolving]
  - Metastases to liver [None]
  - Anaemia [Recovered/Resolved]
  - Abdominal pain [None]
  - Anaemia [None]
  - Renal cell carcinoma [Not Recovered/Not Resolved]
  - Chest pain [Recovering/Resolving]
  - Asthenia [Not Recovered/Not Resolved]
  - Fatigue [Not Recovered/Not Resolved]

NARRATIVE: CASE EVENT DATE: 20170802
